FAERS Safety Report 13677413 (Version 2)
Quarter: 2017Q3

REPORT INFORMATION
  Report Type: Spontaneous
  Country: FR (occurrence: FR)
  Receive Date: 20170622
  Receipt Date: 20170808
  Transmission Date: 20171127
  Serious: Yes (Death, Other)
  Sender: FDA-Public Use
  Company Number: FR-ASTELLAS-2017US024417

PATIENT
  Age: 76 Year
  Sex: Female

DRUGS (4)
  1. MYCAMINE [Suspect]
     Active Substance: MICAFUNGIN SODIUM
     Indication: ONYCHOMYCOSIS
     Route: 042
     Dates: start: 20151221
  2. TERBINAFINE. [Concomitant]
     Active Substance: TERBINAFINE
     Indication: SCOPULARIOPSIS INFECTION
  3. MYCAMINE [Suspect]
     Active Substance: MICAFUNGIN SODIUM
     Indication: SCOPULARIOPSIS INFECTION
     Route: 042
     Dates: start: 20160109, end: 20160211
  4. TERBINAFINE. [Concomitant]
     Active Substance: TERBINAFINE
     Indication: ONYCHOMYCOSIS
     Dosage: UNK UNK, UNKNOWN FREQ.
     Route: 065

REACTIONS (7)
  - Thrombocytopenia [Fatal]
  - Cerebral haemorrhage [Fatal]
  - Dermatitis [Not Recovered/Not Resolved]
  - Skin necrosis [Not Recovered/Not Resolved]
  - Metastases to lung [Not Recovered/Not Resolved]
  - Off label use [Unknown]
  - Skin infection [Not Recovered/Not Resolved]

NARRATIVE: CASE EVENT DATE: 20150727
